FAERS Safety Report 6476542-4 (Version None)
Quarter: 2009Q4

REPORT INFORMATION
  Report Type: 
  Country: None (occurrence: None)
  Receive Date: 20091207
  Receipt Date: 20091201
  Transmission Date: 20100525
  Serious: Yes (Death, Hospitalization)
  Sender: FDA-Public Use
  Company Number: CA-CELGENEUS-028-21880-09102184

PATIENT
  Sex: Female
  Weight: 56.1 kg

DRUGS (16)
  1. REVLIMID [Suspect]
     Route: 048
     Dates: start: 20090715, end: 20091025
  2. OXYCONTIN [Concomitant]
     Indication: BACK PAIN
     Route: 065
     Dates: start: 20090301
  3. IRON [Concomitant]
     Route: 065
     Dates: start: 20090615, end: 20090727
  4. INNOHEP [Concomitant]
     Indication: THROMBOSIS
     Route: 065
     Dates: start: 20091007
  5. RED BLOOD CELLS [Concomitant]
     Dosage: 2 UNITS
     Route: 051
     Dates: start: 20090731, end: 20090731
  6. RED BLOOD CELLS [Concomitant]
     Dosage: 2 UNITS
     Route: 051
     Dates: start: 20090810, end: 20090810
  7. RED BLOOD CELLS [Concomitant]
     Dosage: 1 UNITS
     Route: 051
     Dates: start: 20091012, end: 20091012
  8. NORMAL SALINE [Concomitant]
     Dosage: 1000 CC
     Route: 065
     Dates: start: 20090729, end: 20090729
  9. NORMAL SALINE [Concomitant]
     Indication: DEHYDRATION
     Dosage: 1000 CC
     Route: 065
     Dates: start: 20091015, end: 20091020
  10. RABEPRAZOLE [Concomitant]
     Route: 065
     Dates: start: 20090815
  11. SENOKOT [Concomitant]
     Indication: CONSTIPATION
     Route: 065
     Dates: start: 20090615
  12. GRAVAL [Concomitant]
     Indication: VOMITING
     Dosage: 100-200 MG
     Route: 065
     Dates: start: 20090409, end: 20090809
  13. GRAVAL [Concomitant]
     Indication: NAUSEA
     Dosage: 25-50MG
     Route: 065
  14. IMODIUM [Concomitant]
     Dosage: 4-5
     Route: 065
     Dates: start: 20090409, end: 20090709
  15. COLACE [Concomitant]
     Indication: CONSTIPATION
     Route: 065
     Dates: start: 20090301
  16. LEVOTHYROXINE SODIUM [Concomitant]
     Route: 065
     Dates: start: 20091007

REACTIONS (1)
  - NEOPLASM PROGRESSION [None]
